FAERS Safety Report 11366035 (Version 2)
Quarter: 2015Q3

REPORT INFORMATION
  Report Type: Spontaneous
  Country: US (occurrence: US)
  Receive Date: 20150811
  Receipt Date: 20150827
  Transmission Date: 20151125
  Serious: Yes (Other)
  Sender: FDA-Public Use
  Company Number: US-BAYER-2015-392033

PATIENT
  Age: 21 Year
  Sex: Female

DRUGS (8)
  1. CIPROFLOXACIN. [Suspect]
     Active Substance: CIPROFLOXACIN
     Indication: JUVENILE IDIOPATHIC ARTHRITIS
  2. AMOXICILLIN AND CLAVULANATE POTASSIUM [Concomitant]
     Active Substance: AMOXICILLIN\CLAVULANATE POTASSIUM
     Dosage: UNK
  3. AZITHROMYCIN [Concomitant]
     Active Substance: AZITHROMYCIN ANHYDROUS
     Indication: JUVENILE IDIOPATHIC ARTHRITIS
     Dosage: 250 MG, QD
  4. AZITHROMYCIN [Concomitant]
     Active Substance: AZITHROMYCIN ANHYDROUS
     Indication: JUVENILE IDIOPATHIC ARTHRITIS
     Dosage: UNK
  5. CIPROFLOXACIN. [Suspect]
     Active Substance: CIPROFLOXACIN
     Indication: HIP ARTHROPLASTY
  6. PREDNISOLONE. [Concomitant]
     Active Substance: PREDNISOLONE
     Indication: JUVENILE IDIOPATHIC ARTHRITIS
     Dosage: 20 MG, QD
  7. METRONIDAZOLE. [Concomitant]
     Active Substance: METRONIDAZOLE
     Dosage: UNK
  8. PREDNISOLONE. [Concomitant]
     Active Substance: PREDNISOLONE
     Indication: JUVENILE IDIOPATHIC ARTHRITIS
     Dosage: 10 MG, UNK

REACTIONS (4)
  - Arthritis bacterial [None]
  - Pathogen resistance [None]
  - Drug ineffective [None]
  - Device related sepsis [None]
